FAERS Safety Report 6380295-8 (Version None)
Quarter: 2009Q3

REPORT INFORMATION
  Report Type: 
  Country: None (occurrence: None)
  Receive Date: 20090929
  Receipt Date: 20090917
  Transmission Date: 20100115
  Serious: Yes (Other)
  Sender: FDA-Public Use
  Company Number: GB-ROCHE-657432

PATIENT
  Age: 30 Year
  Sex: Male

DRUGS (3)
  1. TAMIFLU [Suspect]
     Indication: DRUG USE FOR UNKNOWN INDICATION
     Route: 065
     Dates: start: 20090806, end: 20090810
  2. TAMIFLU [Suspect]
     Route: 065
     Dates: start: 20090810
  3. TRAZODONE HYDROCHLORIDE [Concomitant]
     Dosage: TAKEN FOR MORE THAN ONE YEAR.
     Route: 048

REACTIONS (1)
  - PROTHROMBIN TIME PROLONGED [None]
